FAERS Safety Report 16687651 (Version 1)
Quarter: 2019Q4

REPORT INFORMATION
  Report Type: Spontaneous
  Country: US (occurrence: US)
  Receive Date: 20190808
  Receipt Date: 20190808
  Transmission Date: 20200122
  Serious: Yes (Other)
  Sender: FDA-Public Use
  Company Number: None

PATIENT
  Age: 71 Year
  Sex: Male
  Weight: 68.3 kg

DRUGS (12)
  1. ASPIRIN. [Concomitant]
     Active Substance: ASPIRIN
  2. BACTRIM [Concomitant]
     Active Substance: SULFAMETHOXAZOLE\TRIMETHOPRIM
  3. AMLODIPINE [Concomitant]
     Active Substance: AMLODIPINE BESYLATE
  4. LENALIDOMIDE [Concomitant]
     Active Substance: LENALIDOMIDE
  5. PLERIXAFOR [Concomitant]
     Active Substance: PLERIXAFOR
     Dates: start: 20190715, end: 20190715
  6. DEXAMETHSONE [Concomitant]
  7. JANUMET XR [Concomitant]
     Active Substance: METFORMIN HYDROCHLORIDE\SITAGLIPTIN PHOSPHATE
  8. ACYCLOVIR. [Concomitant]
     Active Substance: ACYCLOVIR
  9. K-PHOS NEUTRAL [Concomitant]
     Active Substance: POTASSIUM PHOSPHATE\SODIUM PHOSPHATE
     Dates: start: 20190715, end: 20190715
  10. ERGOCALCIFEROL. [Concomitant]
     Active Substance: ERGOCALCIFEROL
  11. CITRATE PHOSPHATE SOLUTION [Suspect]
     Active Substance: CITRATE PHOSPHATE DEXTROSE
     Indication: BLOOD STEM CELL HARVEST
     Dosage: ?          OTHER FREQUENCY:ONCE;OTHER ROUTE:EXTRACORPOREAL?
  12. ATORVASTATIN [Concomitant]
     Active Substance: ATORVASTATIN

REACTIONS (4)
  - Paraesthesia [None]
  - Procedural complication [None]
  - Blood stem cell harvest [None]
  - Hypoaesthesia [None]

NARRATIVE: CASE EVENT DATE: 20190716
